FAERS Safety Report 10640470 (Version 4)
Quarter: 2015Q1

REPORT INFORMATION
  Report Type: Spontaneous
  Country: BR (occurrence: BR)
  Receive Date: 20141209
  Receipt Date: 20150205
  Transmission Date: 20150720
  Serious: Yes (Other)
  Sender: FDA-Public Use
  Company Number: BR-JNJFOC-20141203238

PATIENT
  Sex: Female

DRUGS (2)
  1. TYLEX [Suspect]
     Active Substance: ACETAMINOPHEN\CODEINE PHOSPHATE
     Indication: PAIN
     Route: 065
  2. ULTRACET [Suspect]
     Active Substance: ACETAMINOPHEN\TRAMADOL HYDROCHLORIDE
     Indication: PAIN
     Dosage: FREQUENCY - PERIDOICALLY, AS NECESSARY
     Route: 048

REACTIONS (8)
  - Spinal fracture [Unknown]
  - Drug ineffective [Unknown]
  - Anaphylactic shock [Recovered/Resolved]
  - Gait disturbance [Not Recovered/Not Resolved]
  - Product colour issue [Unknown]
  - Confusional state [Not Recovered/Not Resolved]
  - Breast cancer [Recovering/Resolving]
  - Medication error [Unknown]

NARRATIVE: CASE EVENT DATE: 2000
